FAERS Safety Report 7820680-8 (Version None)
Quarter: 2011Q4

REPORT INFORMATION
  Report Type: 
  Country: None (occurrence: None)
  Receive Date: 20111013
  Receipt Date: 20110930
  Transmission Date: 20120403
  Serious: Yes (Life-Threatening, Hospitalization)
  Sender: FDA-Public Use
  Company Number: 2011-01135

PATIENT
  Age: 33 Year
  Sex: Male
  Weight: 84 kg

DRUGS (4)
  1. OLANZAPINE [Suspect]
     Indication: SCHIZOPHRENIA
     Dosage: 20 MG (20 MG, 1 IN 1 D), ORAL
     Route: 048
  2. SIMVASTATIN [Suspect]
     Indication: BLOOD CHOLESTEROL INCREASED
     Dosage: 40 MG (40 MG), ORAL
     Route: 048
     Dates: start: 20101124, end: 20101203
  3. HYDROXYZINE (UNKNOWN) [Concomitant]
  4. TRIMETHOPRIM [Concomitant]

REACTIONS (4)
  - BLOOD PRESSURE FLUCTUATION [None]
  - AUTONOMIC NERVOUS SYSTEM IMBALANCE [None]
  - RHABDOMYOLYSIS [None]
  - MENTAL IMPAIRMENT [None]
